FAERS Safety Report 10239204 (Version 2)
Quarter: 2014Q2

REPORT INFORMATION
  Report Type: Spontaneous
  Country: US (occurrence: US)
  Receive Date: 20140616
  Receipt Date: 20140623
  Transmission Date: 20141212
  Serious: Yes (Hospitalization)
  Sender: FDA-Public Use
  Company Number: US-TEVA-487502USA

PATIENT
  Age: 66 Year
  Sex: Female

DRUGS (1)
  1. COPAXONE 40 MG [Suspect]
     Indication: MULTIPLE SCLEROSIS
     Dates: start: 20140417

REACTIONS (2)
  - Chest discomfort [Unknown]
  - Band sensation [Unknown]
